FAERS Safety Report 11737951 (Version 4)
Quarter: 2020Q3

REPORT INFORMATION
  Report Type: Report from Study
  Country: CZ (occurrence: CZ)
  Receive Date: 20151113
  Receipt Date: 20160308
  Transmission Date: 20201104
  Serious: Yes (Hospitalization)
  Sender: FDA-Public Use
  Company Number: CZ-JNJFOC-20151113840

PATIENT
  Age: 77 Year
  Sex: Female

DRUGS (10)
  1. PROTHAZIN [Concomitant]
  2. URAPIDIL [Concomitant]
     Active Substance: URAPIDIL
  3. KAPIDIN [Concomitant]
  4. PRESTARIUM NEO [Concomitant]
     Active Substance: PERINDOPRIL ARGININE
  5. IBRUTINIB [Suspect]
     Active Substance: IBRUTINIB
     Indication: CHRONIC LYMPHOCYTIC LEUKAEMIA
     Route: 048
     Dates: start: 20131106, end: 20151104
  6. GEXAMIN [Concomitant]
  7. RILMENIDINE [Concomitant]
     Active Substance: RILMENIDINE
  8. IBRUTINIB [Suspect]
     Active Substance: IBRUTINIB
     Route: 048
  9. CALCIUM CARBONATE W/COLECALCIFEROL [Concomitant]
     Active Substance: CALCIUM CARBONATE\CHOLECALCIFEROL
  10. CONCOR COR [Concomitant]
     Active Substance: BISOPROLOL FUMARATE

REACTIONS (2)
  - Oedema peripheral [Recovered/Resolved with Sequelae]
  - Eye oedema [Recovered/Resolved]

NARRATIVE: CASE EVENT DATE: 20151002
